FAERS Safety Report 5046728-4 (Version None)
Quarter: 2006Q2

REPORT INFORMATION
  Report Type: 
  Country: None (occurrence: None)
  Receive Date: 20060601
  Receipt Date: 20060314
  Transmission Date: 20061013
  Serious: No
  Sender: FDA-Public Use
  Company Number: 2006PV010241

PATIENT
  Age: 70 Year
  Sex: Female
  Weight: 132.4503 kg

DRUGS (11)
  1. BYETTA [Suspect]
     Indication: DIABETES MELLITUS NON-INSULIN-DEPENDENT
     Dosage: 5 MCG;BID;SC
     Route: 058
     Dates: start: 20060305
  2. WARFARIN SODIUM [Concomitant]
  3. SYNTHROID [Concomitant]
  4. VERAPAMIL [Concomitant]
  5. LISINOPRIL [Concomitant]
  6. COREG [Concomitant]
  7. FUROSEMIDE [Concomitant]
  8. POTASSIUM [Concomitant]
  9. ALPHA BETIC MULTIVITAMIN [Concomitant]
  10. VITAMIN B6 [Concomitant]
  11. DULCOLAX [Concomitant]

REACTIONS (4)
  - ANTICOAGULATION DRUG LEVEL [None]
  - ANTICOAGULATION DRUG LEVEL BELOW THERAPEUTIC [None]
  - INJECTION SITE HAEMORRHAGE [None]
  - WEIGHT DECREASED [None]
